FAERS Safety Report 6597606-0 (Version None)
Quarter: 2010Q1

REPORT INFORMATION
  Report Type: 
  Country: None (occurrence: None)
  Receive Date: 20100223
  Receipt Date: 20100222
  Transmission Date: 20100710
  Serious: Yes (Death, Other)
  Sender: FDA-Public Use
  Company Number: US-ROXANE LABORATORIES, INC.-2010-RO-00190RO

PATIENT
  Sex: Male

DRUGS (2)
  1. METHADONE [Suspect]
  2. FENTANYL-100 [Suspect]
     Route: 062

REACTIONS (2)
  - INTENTIONAL DRUG MISUSE [None]
  - OVERDOSE [None]
